FAERS Safety Report 8715180 (Version 2)
Quarter: 2012Q4

REPORT INFORMATION
  Report Type: 
  Country: US (occurrence: US)
  Receive Date: 20120809
  Receipt Date: 20121001
  Transmission Date: 20130627
  Serious: Yes (Other)
  Sender: FDA-Public Use
  Company Number: PHEH2012US015462

PATIENT
  Age: 76 Year
  Sex: Male

DRUGS (2)
  1. VOLTAREN-XR [Suspect]
     Indication: PROCEDURAL PAIN
     Dosage: UNK UKN, UNK
     Route: 048
  2. BUFERIN [Concomitant]
     Dosage: UNK UKN, UNK

REACTIONS (5)
  - Prostate cancer [Unknown]
  - Tongue neoplasm malignant stage unspecified [Unknown]
  - Carotid artery occlusion [Unknown]
  - Rash generalised [Unknown]
  - Lip swelling [Unknown]
